FAERS Safety Report 16990898 (Version 1)
Quarter: 2019Q4

REPORT INFORMATION
  Report Type: Spontaneous
  Country: US (occurrence: US)
  Receive Date: 20191104
  Receipt Date: 20191104
  Transmission Date: 20200122
  Serious: No
  Sender: FDA-Public Use
  Company Number: US-SA-2019SA301043

PATIENT
  Age: 54 Year
  Sex: Female

DRUGS (2)
  1. ALLEGRA ALLERGY [Suspect]
     Active Substance: FEXOFENADINE HYDROCHLORIDE
     Indication: HYPERSENSITIVITY
     Dosage: 180 MG, UNK
     Route: 065
     Dates: start: 20191006, end: 20191023
  2. ALLEGRA ALLERGY [Suspect]
     Active Substance: FEXOFENADINE HYDROCHLORIDE
     Indication: NASOPHARYNGITIS

REACTIONS (5)
  - Pain in extremity [Unknown]
  - Treatment noncompliance [Unknown]
  - Hypertension [Unknown]
  - Back pain [Unknown]
  - Condition aggravated [Unknown]
